FAERS Safety Report 19101947 (Version 1)
Quarter: 2021Q2

REPORT INFORMATION
  Report Type: Spontaneous
  Country: GB (occurrence: GB)
  Receive Date: 20210407
  Receipt Date: 20210407
  Transmission Date: 20210717
  Serious: Yes (Other)
  Sender: FDA-Public Use
  Company Number: GB-HIKMA PHARMACEUTICALS USA INC.-GB-H14001-21-54023

PATIENT
  Age: 52 Year
  Sex: Female

DRUGS (2)
  1. CARBOPLATIN. [Suspect]
     Active Substance: CARBOPLATIN
     Indication: ILL-DEFINED DISORDER
     Route: 042
     Dates: start: 2020
  2. PACLITAXEL. [Suspect]
     Active Substance: PACLITAXEL
     Indication: ILL-DEFINED DISORDER
     Route: 042
     Dates: start: 2020

REACTIONS (4)
  - Tooth infection [Unknown]
  - Neuropathy peripheral [Unknown]
  - Diarrhoea [Unknown]
  - Fatigue [Unknown]
